FAERS Safety Report 11073055 (Version 1)
Quarter: 2015Q2

REPORT INFORMATION
  Report Type: Spontaneous
  Country: US (occurrence: US)
  Receive Date: 20150428
  Receipt Date: 20150428
  Transmission Date: 20150821
  Serious: No
  Sender: FDA-Public Use
  Company Number: US-MYLANLABS-2014S1009749

PATIENT
  Age: 55 Year
  Sex: Female
  Weight: 90.72 kg

DRUGS (10)
  1. LORAZEPAM TABLETS, USP [Suspect]
     Active Substance: LORAZEPAM
     Indication: OFF LABEL USE
  2. HUMALOG [Concomitant]
     Active Substance: INSULIN LISPRO
     Indication: DIABETES MELLITUS
     Dosage: 10 UNK,PRN
  3. GLYBURIDE. [Concomitant]
     Active Substance: GLYBURIDE
     Indication: DIABETES MELLITUS
     Dosage: 2.5 MG,AM
     Route: 048
  4. LORAZEPAM TABLETS, USP [Suspect]
     Active Substance: LORAZEPAM
     Indication: ORAL PAIN
  5. HUMULIN N [Concomitant]
     Active Substance: INSULIN HUMAN
     Indication: DIABETES MELLITUS
     Dosage: 30 UNK,HS
  6. VITAMIN D [Concomitant]
     Active Substance: CHOLECALCIFEROL
     Dosage: 3000 IU,UNK
     Route: 048
  7. CALCIO-MAGNESIO-ZINC [Concomitant]
     Dosage: UNK
  8. PREMARIN [Concomitant]
     Active Substance: ESTROGENS, CONJUGATED
     Dosage: .5 MG,3XW
  9. LORAZEPAM TABLETS, USP [Suspect]
     Active Substance: LORAZEPAM
     Indication: NERVE INJURY
     Dosage: 1 MG,QID
     Route: 048
  10. LORAZEPAM TABLETS, USP [Suspect]
     Active Substance: LORAZEPAM
     Indication: DEPRESSION

REACTIONS (6)
  - Drug ineffective [Not Recovered/Not Resolved]
  - Insomnia [Not Recovered/Not Resolved]
  - Tremor [Not Recovered/Not Resolved]
  - Oral discomfort [Not Recovered/Not Resolved]
  - Restlessness [Not Recovered/Not Resolved]
  - Malaise [Not Recovered/Not Resolved]

NARRATIVE: CASE EVENT DATE: 201403
